FAERS Safety Report 5911064-8 (Version None)
Quarter: 2008Q4

REPORT INFORMATION
  Report Type: 
  Country: None (occurrence: None)
  Receive Date: 20081007
  Receipt Date: 20070816
  Transmission Date: 20090506
  Serious: No
  Sender: FDA-Public Use
  Company Number: US-BRISTOL-MYERS SQUIBB COMPANY-13879994

PATIENT
  Age: 52 Year
  Sex: Female

DRUGS (3)
  1. AVAPRO [Suspect]
  2. ADVAIR DISKUS 100/50 [Concomitant]
  3. LAC-HYDRIN [Concomitant]

REACTIONS (2)
  - DIZZINESS [None]
  - PARAESTHESIA [None]
